FAERS Safety Report 4452130-6 (Version None)
Quarter: 2004Q3

REPORT INFORMATION
  Report Type: 
  Country: None (occurrence: None)
  Receive Date: 20040917
  Receipt Date: 20040908
  Transmission Date: 20050211
  Serious: Yes (Other)
  Sender: FDA-Public Use
  Company Number: FR-JNJFOC-20040706065

PATIENT
  Age: 28 Year
  Sex: Female

DRUGS (5)
  1. RISPERDAL [Suspect]
     Route: 049
     Dates: start: 20031201, end: 20040301
  2. RISPERDAL [Suspect]
     Route: 049
     Dates: start: 20031201, end: 20040301
  3. RISPERDAL [Suspect]
     Route: 049
     Dates: start: 20031201, end: 20040301
  4. RISPERDAL [Suspect]
     Route: 049
     Dates: start: 20031201, end: 20040301
  5. RISPERDAL CONSTA [Suspect]
     Route: 030
     Dates: start: 20040301, end: 20040701

REACTIONS (3)
  - CARDIOLIPIN ANTIBODY [None]
  - NEUTROPENIA [None]
  - THROMBOCYTOPENIA [None]
